FAERS Safety Report 14654918 (Version 3)
Quarter: 2018Q2

REPORT INFORMATION
  Report Type: Report from Study
  Country: DE (occurrence: DE)
  Receive Date: 20180319
  Receipt Date: 20180629
  Transmission Date: 20180711
  Serious: Yes (Hospitalization, Other)
  Sender: FDA-Public Use
  Company Number: DE-GLAXOSMITHKLINE-DE2018042491

PATIENT
  Age: 15 Year
  Sex: Male
  Weight: 106 kg

DRUGS (19)
  1. TOPIRAMATE. [Concomitant]
     Active Substance: TOPIRAMATE
     Indication: EPILEPSY
     Dosage: DAILY DOSE: 200 MG MILLGRAM(S) EVERY DAYS
     Route: 048
  2. OXCARBAZEPINE. [Concomitant]
     Active Substance: OXCARBAZEPINE
     Indication: EPILEPSY
     Dosage: 1500 MG, UNK
     Route: 048
  3. PERAMPANEL [Concomitant]
     Active Substance: PERAMPANEL
     Indication: STILL^S DISEASE
     Dosage: 8 MG, UNK
     Route: 048
  4. ROACTEMRA [Suspect]
     Active Substance: TOCILIZUMAB
     Indication: STILL^S DISEASE
     Dosage: 640 MG, Q2WEEKS (ONCE IN 2 WEEKS)
     Route: 042
  5. ROACTEMRA [Suspect]
     Active Substance: TOCILIZUMAB
     Indication: STILL^S DISEASE
     Dosage: 640 MG, Q2W
     Route: 042
  6. OMEPRAZOLE. [Concomitant]
     Active Substance: OMEPRAZOLE
     Indication: STILL^S DISEASE
     Dosage: UNK
     Route: 048
  7. ETORICOXIB [Concomitant]
     Active Substance: ETORICOXIB
     Indication: STILL^S DISEASE
     Dosage: DAILY DOSE: 90 MG MILLGRAM(S) EVERY DAYS
     Route: 048
  8. FOLSAEURE [Concomitant]
     Active Substance: FOLIC ACID
     Indication: STILL^S DISEASE
     Dosage: 5 MG, UNK
     Route: 048
  9. METHOTREXATE. [Suspect]
     Active Substance: METHOTREXATE
     Indication: STILL^S DISEASE
     Dosage: 20 MG, QW
     Route: 048
     Dates: start: 20141204
  10. OMEPRAZOLE. [Concomitant]
     Active Substance: OMEPRAZOLE
     Indication: STILL^S DISEASE
  11. ROACTEMRA [Suspect]
     Active Substance: TOCILIZUMAB
     Dosage: 640 MG, Q2W
     Route: 042
  12. PREDNISONE. [Suspect]
     Active Substance: PREDNISONE
     Indication: STILL^S DISEASE
     Dosage: 7.5 MG, UNK
     Route: 065
  13. FOLIC ACID. [Concomitant]
     Active Substance: FOLIC ACID
     Indication: PRODUCT USED FOR UNKNOWN INDICATION
     Dosage: 5 MG, UNK
     Route: 048
  14. ARCOXIA [Concomitant]
     Active Substance: ETORICOXIB
     Indication: STILL^S DISEASE
     Dosage: 90 MG, QD
     Route: 065
  15. ETORICOXIB [Concomitant]
     Active Substance: ETORICOXIB
     Dosage: 90 MG, QD
     Dates: start: 20160403
  16. PANTOPRAZOLE [Suspect]
     Active Substance: PANTOPRAZOLE
     Indication: STILL^S DISEASE
     Dosage: 80 MG, UNK
     Route: 065
  17. DICLOFENAC SODIUM. [Suspect]
     Active Substance: DICLOFENAC SODIUM
     Indication: STILL^S DISEASE
     Dosage: 100 MG, QD
     Route: 048
     Dates: start: 20141217, end: 20150113
  18. PERAMPANEL [Concomitant]
     Active Substance: PERAMPANEL
     Indication: STILL^S DISEASE
  19. ETORICOXIB [Concomitant]
     Active Substance: ETORICOXIB
     Indication: STILL^S DISEASE
     Dosage: UNK
     Route: 048

REACTIONS (9)
  - Epilepsy [Recovered/Resolved]
  - Craniocerebral injury [Unknown]
  - Fall [Unknown]
  - Otitis media [Recovered/Resolved]
  - Pneumonia aspiration [Recovered/Resolved]
  - Epilepsy [Recovered/Resolved]
  - Sinusitis [Recovered/Resolved]
  - Seizure [Recovered/Resolved]
  - Hand fracture [Unknown]

NARRATIVE: CASE EVENT DATE: 20150430
